FAERS Safety Report 6490541-8 (Version None)
Quarter: 2009Q4

REPORT INFORMATION
  Report Type: 
  Country: None (occurrence: None)
  Receive Date: 20091211
  Receipt Date: 20091201
  Transmission Date: 20100525
  Serious: Yes (Hospitalization)
  Sender: FDA-Public Use
  Company Number: JP-PFIZER INC-2007106958

PATIENT
  Age: 57 Year
  Sex: Female
  Weight: 44 kg

DRUGS (8)
  1. AZULFIDINE [Suspect]
     Indication: RHEUMATOID ARTHRITIS
     Dosage: 500 MG, 2X/DAY
     Route: 048
     Dates: start: 20061221, end: 20070127
  2. RHEUMATREX [Suspect]
     Indication: RHEUMATOID ARTHRITIS
     Dosage: 3 EVERY 36 HOURS
     Route: 048
     Dates: start: 20070118, end: 20070119
  3. PREDNISOLONE [Concomitant]
     Dosage: 5MG/DAY
     Route: 048
     Dates: start: 20061221
  4. VOLTAREN [Concomitant]
     Route: 048
     Dates: start: 20061207
  5. ALTAT [Concomitant]
     Route: 048
     Dates: start: 20061221
  6. ALFACALCIDOL [Concomitant]
     Route: 048
     Dates: start: 20061221
  7. ALENDRONATE SODIUM [Concomitant]
     Route: 048
     Dates: start: 20061221
  8. MUCOSTA [Concomitant]
     Route: 048
     Dates: start: 20061207

REACTIONS (2)
  - DRUG RASH WITH EOSINOPHILIA AND SYSTEMIC SYMPTOMS [None]
  - HERPES VIRUS INFECTION [None]
